FAERS Safety Report 23941557 (Version 2)
Quarter: 2024Q3

REPORT INFORMATION
  Report Type: Spontaneous
  Country: US (occurrence: US)
  Receive Date: 20240605
  Receipt Date: 20240709
  Transmission Date: 20241017
  Serious: No
  Sender: CSL BEHRING
  Company Number: US-BEH-2024172805

PATIENT
  Sex: Female

DRUGS (18)
  1. HIZENTRA [Suspect]
     Active Substance: HUMAN IMMUNOGLOBULIN G
     Indication: Chronic inflammatory demyelinating polyradiculoneuropathy
     Dosage: 37 G, QW
     Route: 058
     Dates: start: 20240424
  2. PREDNISONE [Concomitant]
     Active Substance: PREDNISONE
  3. ACETAMINOPHEN [Concomitant]
     Active Substance: ACETAMINOPHEN
  4. ADIPEX-P [Concomitant]
     Active Substance: PHENTERMINE HYDROCHLORIDE
  5. AIMOVIG [Concomitant]
     Active Substance: ERENUMAB-AOOE
  6. DIPHENHYDRAMINE [Concomitant]
     Active Substance: DIPHENHYDRAMINE
  7. EPINEPHRINE [Concomitant]
     Active Substance: EPINEPHRINE
  8. HYDROXYCHLOROQUINE SULFATE [Concomitant]
     Active Substance: HYDROXYCHLOROQUINE SULFATE
  9. INCRUSE ELLIPTA [Concomitant]
     Active Substance: UMECLIDINIUM BROMIDE
  10. LAMICTAL [Concomitant]
     Active Substance: LAMOTRIGINE
  11. LEVOBUNOLOL [Concomitant]
     Active Substance: LEVOBUNOLOL
  12. LIDOCAINE AND PRILOCAINE [Concomitant]
     Active Substance: LIDOCAINE\PRILOCAINE
  13. MAGNESIUM [Concomitant]
     Active Substance: MAGNESIUM
  14. NALTREXONE [Concomitant]
     Active Substance: NALTREXONE
  15. ONDANSETRON [Concomitant]
     Active Substance: ONDANSETRON
  16. PILOCARPINE [Concomitant]
     Active Substance: PILOCARPINE
  17. PROMETHAZINE [Concomitant]
     Active Substance: PROMETHAZINE HYDROCHLORIDE
  18. VENTOLIN HFA [Concomitant]
     Active Substance: ALBUTEROL SULFATE

REACTIONS (2)
  - Headache [Recovering/Resolving]
  - Weight increased [Unknown]
